FAERS Safety Report 9379761 (Version 1)
Quarter: 2013Q3

REPORT INFORMATION
  Report Type: Spontaneous
  Country: SG (occurrence: SG)
  Receive Date: 20130702
  Receipt Date: 20130702
  Transmission Date: 20140515
  Serious: Yes (Hospitalization)
  Sender: FDA-Public Use
  Company Number: PHHY2013SG066427

PATIENT
  Age: 17 Year
  Sex: Male

DRUGS (2)
  1. SULFAMETHOXAZOLE+TRIMETHOPRIM [Suspect]
     Indication: ACNE CYSTIC
     Dosage: 480 MG FOR 28 DAYS
  2. ISOTRETINOIN [Concomitant]
     Indication: ACNE CYSTIC

REACTIONS (10)
  - Hepatic encephalopathy [Recovered/Resolved]
  - Drug reaction with eosinophilia and systemic symptoms [Recovered/Resolved]
  - Pyrexia [Recovered/Resolved]
  - Myalgia [Recovered/Resolved]
  - Rash erythematous [Recovered/Resolved]
  - Disorientation [Recovered/Resolved]
  - Lymphadenopathy [Recovered/Resolved]
  - Rash maculo-papular [Recovered/Resolved]
  - Jaundice [Recovered/Resolved]
  - Hepatitis [Recovered/Resolved]
